FAERS Safety Report 12726176 (Version 5)
Quarter: 2017Q1

REPORT INFORMATION
  Report Type: Report from Study
  Country: US (occurrence: US)
  Receive Date: 20160908
  Receipt Date: 20170203
  Transmission Date: 20170428
  Serious: Yes (Hospitalization, Other)
  Sender: FDA-Public Use
  Company Number: US-SA-2016SA112430

PATIENT
  Age: 53 Year
  Sex: Female

DRUGS (2)
  1. LEMTRADA [Suspect]
     Active Substance: ALEMTUZUMAB
     Indication: MULTIPLE SCLEROSIS
     Route: 041
     Dates: start: 20160606, end: 20160610
  2. BACLOFEN. [Concomitant]
     Active Substance: BACLOFEN

REACTIONS (24)
  - Cellulitis [Recovered/Resolved]
  - Haematoma [Recovering/Resolving]
  - Rash [Not Recovered/Not Resolved]
  - Fatigue [Recovering/Resolving]
  - Pyrexia [Recovered/Resolved]
  - Gait disturbance [Not Recovered/Not Resolved]
  - Pain in extremity [Not Recovered/Not Resolved]
  - Poor venous access [Unknown]
  - Back pain [Unknown]
  - Arthralgia [Not Recovered/Not Resolved]
  - White blood cell count increased [Unknown]
  - Balance disorder [Recovering/Resolving]
  - Asthenia [Recovering/Resolving]
  - Sciatica [Not Recovered/Not Resolved]
  - Pain [Not Recovered/Not Resolved]
  - Thrombosis [Recovered/Resolved]
  - Urinary incontinence [Recovering/Resolving]
  - Fall [Unknown]
  - Face injury [Unknown]
  - Feeling abnormal [Recovered/Resolved]
  - Mood altered [Not Recovered/Not Resolved]
  - Spinal column stenosis [Not Recovered/Not Resolved]
  - International normalised ratio abnormal [Not Recovered/Not Resolved]
  - Asthenia [Unknown]

NARRATIVE: CASE EVENT DATE: 2016
